FAERS Safety Report 8459619-3 (Version None)
Quarter: 2012Q2

REPORT INFORMATION
  Report Type: 
  Country: None (occurrence: None)
  Receive Date: 20120622
  Receipt Date: 20120613
  Transmission Date: 20120825
  Serious: Yes (Hospitalization)
  Sender: FDA-Public Use
  Company Number: US-GLAXOSMITHKLINE-A0981558A

PATIENT
  Age: 40 Year
  Sex: Female
  Weight: 59.1 kg

DRUGS (14)
  1. NEXIUM [Concomitant]
     Indication: ABDOMINAL DISCOMFORT
     Dosage: 4MG PER DAY
     Route: 048
  2. NICORETTE [Suspect]
     Indication: SMOKING CESSATION THERAPY
     Route: 002
  3. EFFEXOR XR [Suspect]
     Indication: PRODUCT USED FOR UNKNOWN INDICATION
     Dosage: 75MG TWICE PER DAY
     Route: 048
  4. LORATADINE [Concomitant]
     Indication: HYPERSENSITIVITY
  5. LESCOL [Concomitant]
     Indication: BLOOD CHOLESTEROL INCREASED
  6. ZOMIG [Concomitant]
     Indication: CLUSTER HEADACHE
     Route: 045
  7. SEROQUEL [Suspect]
     Indication: DEPRESSION
     Dosage: 200MG SEE DOSAGE TEXT
  8. ATIVAN [Concomitant]
     Indication: ANXIETY
     Dosage: 2MG THREE TIMES PER DAY
     Route: 048
  9. TIGAN [Concomitant]
     Indication: NAUSEA
  10. LAMICTAL [Suspect]
     Indication: CONVULSION
     Dosage: 200MG TWICE PER DAY
     Route: 048
  11. ASPIRIN [Concomitant]
     Indication: ANTICOAGULANT THERAPY
     Dosage: 81MG PER DAY
     Route: 048
  12. FIORICET [Concomitant]
     Indication: CLUSTER HEADACHE
  13. GINGER [Concomitant]
     Indication: NAUSEA
  14. WELLBUTRIN [Concomitant]

REACTIONS (7)
  - ACCIDENTAL OVERDOSE [None]
  - ACCIDENT [None]
  - LIMB CRUSHING INJURY [None]
  - PAIN [None]
  - GAIT DISTURBANCE [None]
  - TREMOR [None]
  - THERAPEUTIC RESPONSE UNEXPECTED [None]
